FAERS Safety Report 17493029 (Version 1)
Quarter: 2020Q1

REPORT INFORMATION
  Report Type: Spontaneous
  Country: GB (occurrence: GB)
  Receive Date: 20200304
  Receipt Date: 20200304
  Transmission Date: 20200409
  Serious: Yes (Other)
  Sender: FDA-Public Use
  Company Number: GB-TEVA-2020-GB-1193937

PATIENT
  Age: 71 Year
  Sex: Female
  Weight: 42 kg

DRUGS (16)
  1. PREDNISOLONE. [Concomitant]
     Active Substance: PREDNISOLONE
  2. CLARITHROMYCIN. [Concomitant]
     Active Substance: CLARITHROMYCIN
  3. TEICOPLANIN [Concomitant]
     Active Substance: TEICOPLANIN
  4. SALBUTAMOL [Concomitant]
     Active Substance: ALBUTEROL
  5. ENOXAPARIN [Concomitant]
     Active Substance: ENOXAPARIN
  6. AMOXICILLIN. [Concomitant]
     Active Substance: AMOXICILLIN
  7. DIHYDROCODEINE [Concomitant]
     Active Substance: DIHYDROCODEINE
  8. HYOSCINE BUTYLBROMIDE [Concomitant]
     Active Substance: BUTYLSCOPOLAMINE BROMIDE
  9. NICOTINELL [Concomitant]
     Active Substance: NICOTINE
  10. SIMVASTATIN. [Concomitant]
     Active Substance: SIMVASTATIN
  11. IPRATROPIUM BROMIDE. [Suspect]
     Active Substance: IPRATROPIUM BROMIDE
     Indication: INFECTIVE EXACERBATION OF CHRONIC OBSTRUCTIVE AIRWAYS DISEASE
     Dosage: 2000 MICROGRAM 1 DAYS
     Route: 055
     Dates: start: 20190108, end: 20190114
  12. DIAZEPAM. [Concomitant]
     Active Substance: DIAZEPAM
  13. AMLODIPINE [Concomitant]
     Active Substance: AMLODIPINE BESYLATE
  14. CIPROFLOXACIN HYDROCHLORIDE. [Concomitant]
     Active Substance: CIPROFLOXACIN HYDROCHLORIDE
  15. PARACETAMOL [Concomitant]
     Active Substance: ACETAMINOPHEN
  16. LANSOPRAZOLE. [Concomitant]
     Active Substance: LANSOPRAZOLE

REACTIONS (6)
  - Foreign body sensation in eyes [Unknown]
  - Visual impairment [Recovering/Resolving]
  - Angle closure glaucoma [Not Recovered/Not Resolved]
  - Abnormal sensation in eye [Unknown]
  - Ocular hyperaemia [Unknown]
  - Eye pain [Unknown]

NARRATIVE: CASE EVENT DATE: 20200113
